FAERS Safety Report 9183142 (Version 1)
Quarter: 2013Q1

REPORT INFORMATION
  Report Type: Spontaneous
  Country: US (occurrence: US)
  Receive Date: 20130322
  Receipt Date: 20130322
  Transmission Date: 20140127
  Serious: No
  Sender: FDA-Public Use
  Company Number: US-BRISTOL-MYERS SQUIBB COMPANY-16913527

PATIENT
  Age: 47 Year
  Sex: Male

DRUGS (3)
  1. ERBITUX [Suspect]
     Dosage: 500MG D1 D8+D15 OFF A WK AND REPEAT CYCLE FOR TOTAL OF THREE CYCLES
     Dates: start: 20120816
  2. CISPLATIN [Suspect]
     Dosage: ON DAY 1 OF EACH CYCLE
  3. TAXOTERE [Suspect]
     Dosage: ON DAY 1 OF EACH CYCLE

REACTIONS (2)
  - Dermatitis acneiform [Recovered/Resolved]
  - Pruritus [Unknown]
